FAERS Safety Report 25411655 (Version 2)
Quarter: 2025Q3

REPORT INFORMATION
  Report Type: Spontaneous
  Country: CH (occurrence: CH)
  Receive Date: 20250609
  Receipt Date: 20250723
  Transmission Date: 20251021
  Serious: Yes (Hospitalization)
  Sender: TAKEDA
  Company Number: None

PATIENT
  Age: 74 Year
  Sex: Female

DRUGS (11)
  1. BRINTELLIX [Interacting]
     Active Substance: VORTIOXETINE HYDROBROMIDE
     Indication: Depression
     Dosage: 3 DOSAGE FORM, QD
     Dates: start: 202110, end: 20250311
  2. HYDROCHLOROTHIAZIDE\VALSARTAN [Interacting]
     Active Substance: HYDROCHLOROTHIAZIDE\VALSARTAN
     Indication: Hypertension
     Dosage: 0.5 DOSAGE FORM, QD
     Dates: start: 20250310, end: 20250311
  3. ALBUTEROL [Concomitant]
     Active Substance: ALBUTEROL
     Indication: Product used for unknown indication
  4. CHOLECALCIFEROL [Concomitant]
     Active Substance: CHOLECALCIFEROL
     Indication: Product used for unknown indication
  5. CALCIUM\CHOLECALCIFEROL [Concomitant]
     Active Substance: CALCIUM\CHOLECALCIFEROL
     Indication: Product used for unknown indication
  6. MAGNESIUM ASPARTATE HYDROCHLORIDE [Concomitant]
     Active Substance: MAGNESIUM ASPARTATE HYDROCHLORIDE
     Indication: Product used for unknown indication
  7. Bisoprolol mepha [Concomitant]
     Indication: Product used for unknown indication
  8. SODIUM CHONDROITIN SULFATE [Concomitant]
     Active Substance: SODIUM CHONDROITIN SULFATE
     Indication: Product used for unknown indication
  9. Mydocalm [Concomitant]
     Indication: Product used for unknown indication
  10. MONTELUKAST SODIUM [Concomitant]
     Active Substance: MONTELUKAST SODIUM
  11. BILASTINE [Concomitant]
     Active Substance: BILASTINE
     Indication: Product used for unknown indication

REACTIONS (3)
  - Hyponatraemia [Recovering/Resolving]
  - Drug interaction [Recovering/Resolving]
  - Underdose [Unknown]

NARRATIVE: CASE EVENT DATE: 20250310
